FAERS Safety Report 5597215-6 (Version None)
Quarter: 2007Q4

REPORT INFORMATION
  Report Type: 
  Country: None (occurrence: None)
  Receive Date: 20071221
  Receipt Date: 20071024
  Transmission Date: 20080405
  Serious: No
  Sender: FDA-Public Use
  Company Number: US-CVT-070173

PATIENT
  Age: 2 Year
  Sex: Male

DRUGS (1)
  1. RANEXA [Suspect]
     Indication: ACCIDENTAL DRUG INTAKE BY CHILD
     Dosage: 500 MG, SINGLE, ORAL
     Route: 048
     Dates: start: 20071022, end: 20071022

REACTIONS (1)
  - ACCIDENTAL DRUG INTAKE BY CHILD [None]
